FAERS Safety Report 24956436 (Version 1)
Quarter: 2025Q1

REPORT INFORMATION
  Report Type: Spontaneous
  Country: US (occurrence: US)
  Receive Date: 20250211
  Receipt Date: 20250211
  Transmission Date: 20250409
  Serious: Yes (Other)
  Sender: AMGEN
  Company Number: US-AMGEN-USASP2025023439

PATIENT
  Age: 76 Year
  Sex: Female

DRUGS (3)
  1. PROLIA [Suspect]
     Active Substance: DENOSUMAB
     Indication: Product used for unknown indication
     Route: 065
     Dates: start: 201701, end: 20220501
  2. PROLIA [Suspect]
     Active Substance: DENOSUMAB
     Route: 065
     Dates: start: 20221107
  3. CALCIUM CARBONATE [Concomitant]
     Active Substance: CALCIUM CARBONATE
     Route: 065

REACTIONS (17)
  - Kidney infection [Unknown]
  - Lower respiratory tract infection [Unknown]
  - Central nervous system infection [Unknown]
  - Asthenia [Unknown]
  - Bone disorder [Unknown]
  - Crystal urine present [Unknown]
  - Tinnitus [Unknown]
  - Hypercalcaemia [Unknown]
  - Osteoporosis [Unknown]
  - Kidney small [Unknown]
  - Renal pain [Unknown]
  - Weight decreased [Unknown]
  - Upper-airway cough syndrome [Unknown]
  - Exostosis of jaw [Unknown]
  - Tremor [Unknown]
  - Therapy interrupted [Unknown]
  - Malaise [Unknown]

NARRATIVE: CASE EVENT DATE: 20191001
